FAERS Safety Report 9988017 (Version 3)
Quarter: 2014Q1

REPORT INFORMATION
  Report Type: Spontaneous
  Country: IT (occurrence: IT)
  Receive Date: 20140307
  Receipt Date: 20140321
  Transmission Date: 20141002
  Serious: Yes (Hospitalization)
  Sender: FDA-Public Use
  Company Number: IT-ASTRAZENECA-2014SE14836

PATIENT
  Age: 31096 Day
  Sex: Male

DRUGS (5)
  1. SEROQUEL [Suspect]
     Indication: SEDATION
     Route: 048
     Dates: start: 20140204, end: 20140205
  2. ALPRAZOLAM [Suspect]
     Indication: SEDATION
     Route: 065
     Dates: start: 20140205, end: 20140205
  3. GABAPENTIN [Suspect]
     Indication: SEDATION
     Route: 048
     Dates: start: 20140205, end: 20140205
  4. LOBIVON (NEBIVOLOL) [Concomitant]
  5. MADOPAR [Concomitant]
     Indication: PARKINSONISM
     Dosage: 100MG+25MG HARD CAPSULE

REACTIONS (3)
  - Erythema [Recovering/Resolving]
  - Sopor [Recovering/Resolving]
  - Off label use [Recovering/Resolving]
